FAERS Safety Report 10019639 (Version 1)
Quarter: 2014Q1

REPORT INFORMATION
  Report Type: Spontaneous
  Country: US (occurrence: US)
  Receive Date: 20140318
  Receipt Date: 20140318
  Transmission Date: 20141002
  Serious: Yes (Other)
  Sender: FDA-Public Use
  Company Number: US-BRACCO-010654

PATIENT
  Sex: 0

DRUGS (1)
  1. PROHANCE [Suspect]
     Indication: DIAGNOSTIC PROCEDURE
     Route: 037

REACTIONS (3)
  - Wrong drug administered [Unknown]
  - Meningitis chemical [Unknown]
  - Spinal pain [Unknown]
